FAERS Safety Report 13337515 (Version 1)
Quarter: 2017Q1

REPORT INFORMATION
  Report Type: Spontaneous
  Country: US (occurrence: US)
  Receive Date: 20170314
  Receipt Date: 20170314
  Transmission Date: 20170428
  Serious: Yes (Other)
  Sender: FDA-Public Use
  Company Number: None

PATIENT
  Age: 73 Year
  Sex: Female

DRUGS (1)
  1. DULOXETINE DR 60MG BRECKENRIDGE [Suspect]
     Active Substance: DULOXETINE
     Route: 048
     Dates: start: 20170303, end: 20170313

REACTIONS (4)
  - Product quality issue [None]
  - Drug ineffective [None]
  - Crying [None]
  - Feeling jittery [None]

NARRATIVE: CASE EVENT DATE: 20170303
